FAERS Safety Report 17335872 (Version 2)
Quarter: 2020Q2

REPORT INFORMATION
  Report Type: Spontaneous
  Country: US (occurrence: US)
  Receive Date: 20200128
  Receipt Date: 20200618
  Transmission Date: 20200713
  Serious: Yes (Death, Hospitalization, Other)
  Sender: FDA-Public Use
  Company Number: US-009507513-2001USA007840

PATIENT
  Sex: Female

DRUGS (2)
  1. KEYTRUDA [Suspect]
     Active Substance: PEMBROLIZUMAB
     Indication: CHORIOCARCINOMA
     Dosage: 8 CYCLES
     Dates: start: 201906, end: 201911
  2. OLAPARIB. [Suspect]
     Active Substance: OLAPARIB
     Dosage: UNK
     Dates: start: 2019, end: 2019

REACTIONS (5)
  - Malignant neoplasm progression [Fatal]
  - Immune-mediated pneumonitis [Unknown]
  - Adverse event [Unknown]
  - Pulmonary embolism [Unknown]
  - Product use in unapproved indication [Unknown]

NARRATIVE: CASE EVENT DATE: 2019
